FAERS Safety Report 26209728 (Version 1)
Quarter: 2025Q4

REPORT INFORMATION
  Report Type: Spontaneous
  Country: CA (occurrence: CA)
  Receive Date: 20251229
  Receipt Date: 20251229
  Transmission Date: 20260118
  Serious: Yes (Hospitalization)
  Sender: PFIZER
  Company Number: CA-PFIZER INC-PV202500148452

PATIENT
  Age: 56 Year
  Sex: Female

DRUGS (2)
  1. IXIFI [Suspect]
     Active Substance: INFLIXIMAB-QBTX
     Indication: Crohn^s disease
     Dosage: UNK
     Route: 042
  2. IXIFI [Suspect]
     Active Substance: INFLIXIMAB-QBTX
     Dosage: EVERY 4 WEEKS
     Route: 042
     Dates: start: 20251212

REACTIONS (5)
  - Nephrolithiasis [Unknown]
  - Vomiting [Recovering/Resolving]
  - Diarrhoea [Recovering/Resolving]
  - Abdominal pain [Recovering/Resolving]
  - Off label use [Unknown]

NARRATIVE: CASE EVENT DATE: 20251205
